FAERS Safety Report 7034705-3 (Version None)
Quarter: 2010Q4

REPORT INFORMATION
  Report Type: 
  Country: None (occurrence: None)
  Receive Date: 20101008
  Receipt Date: 20100929
  Transmission Date: 20110411
  Serious: Yes (Hospitalization, Other)
  Sender: FDA-Public Use
  Company Number: AT-JNJFOC-20100908733

PATIENT
  Age: 35 Year
  Sex: Male

DRUGS (8)
  1. HALDOL [Suspect]
     Indication: SCHIZOPHRENIA, PARANOID TYPE
     Route: 065
  2. RISPERDAL [Suspect]
     Indication: SCHIZOPHRENIA, PARANOID TYPE
     Route: 065
  3. RISPERDAL [Suspect]
     Route: 065
  4. RISPERDAL [Suspect]
     Route: 065
  5. RISPERDAL [Suspect]
     Route: 065
  6. RISPERDAL [Suspect]
     Route: 048
  7. TEMESTA [Suspect]
     Indication: SCHIZOPHRENIA, PARANOID TYPE
     Route: 065
  8. LEPONEX [Suspect]
     Indication: PRODUCT USED FOR UNKNOWN INDICATION
     Route: 065

REACTIONS (4)
  - DYSPHAGIA [None]
  - EXTRAPYRAMIDAL DISORDER [None]
  - REGURGITATION [None]
  - TREATMENT NONCOMPLIANCE [None]
